FAERS Safety Report 12166550 (Version 1)
Quarter: 2016Q1

REPORT INFORMATION
  Report Type: Spontaneous
  Country: IT (occurrence: IT)
  Receive Date: 20160309
  Receipt Date: 20160309
  Transmission Date: 20160526
  Serious: Yes (Other)
  Sender: FDA-Public Use
  Company Number: IT-HOSPIRA-3198646

PATIENT
  Age: 25 Year
  Sex: Male

DRUGS (6)
  1. CISPLATIN. [Suspect]
     Active Substance: CISPLATIN
     Indication: GERM CELL NEOPLASM
     Dosage: ON DAYS 1-5
  2. ETOPOSIDE. [Suspect]
     Active Substance: ETOPOSIDE
     Indication: GERM CELL NEOPLASM
     Dosage: DIVIDED INTO FOUR DOSES GIVEN ON DAYS 1, 2, 3, AND 4
  3. CARBOPLATIN. [Suspect]
     Active Substance: CARBOPLATIN
     Indication: GERM CELL NEOPLASM
     Dosage: AUC 20; DIVIDED INTO FOUR DOSES GIVEN ON DAYS 1, 2, 3, AND 4
  4. CYCLOPHOSPHAMIDE. [Suspect]
     Active Substance: CYCLOPHOSPHAMIDE
     Indication: GERM CELL NEOPLASM
     Dosage: DIVIDED INTO FOUR DOSES GIVEN ON DAYS 1, 2, 3, AND 4
  5. BLEOMYCIN [Suspect]
     Active Substance: BLEOMYCIN SULFATE
     Indication: GERM CELL NEOPLASM
     Dosage: ON DAYS 2, 9, AND 16
  6. ETOPOSIDE. [Suspect]
     Active Substance: ETOPOSIDE
     Indication: GERM CELL NEOPLASM
     Dosage: ON DAYS 1-5

REACTIONS (2)
  - Alpha 1 foetoprotein increased [Recovered/Resolved]
  - Drug-induced liver injury [Recovered/Resolved]
